FAERS Safety Report 8921926 (Version 1)
Quarter: 2012Q4

REPORT INFORMATION
  Report Type: Spontaneous
  Country: US (occurrence: None)
  Receive Date: 20121119
  Receipt Date: 20121119
  Transmission Date: 20130627
  Serious: Yes (Other)
  Sender: FDA-Public Use
  Company Number: None

PATIENT
  Age: 75 Year
  Sex: Female
  Weight: 71.67 kg

DRUGS (2)
  1. CYMBALTA 30 MG LILLY [Suspect]
     Indication: OSTEOARTHRITIS
     Route: 048
     Dates: start: 20121015, end: 20121022
  2. CYMBALTA 60MG ELI LILLY [Suspect]
     Indication: OSTEOARTHRITIS
     Route: 048
     Dates: start: 20121023, end: 20121106

REACTIONS (1)
  - Stomatitis [None]
